FAERS Safety Report 7902944-2 (Version None)
Quarter: 2011Q4

REPORT INFORMATION
  Report Type: 
  Country: None (occurrence: None)
  Receive Date: 20111109
  Receipt Date: 20111028
  Transmission Date: 20120403
  Serious: Yes (Hospitalization)
  Sender: FDA-Public Use
  Company Number: NL-JNJFOC-20050701600

PATIENT
  Sex: Female
  Weight: 80 kg

DRUGS (6)
  1. PAROXETINE HCL [Concomitant]
     Indication: DEPRESSION
     Route: 065
     Dates: start: 20030708
  2. INFLIXIMAB, RECOMBINANT [Suspect]
     Indication: RHEUMATOID ARTHRITIS
     Dosage: NO DRUG WAS ADMINISTERED.
     Route: 042
  3. METHOTREXATE [Concomitant]
     Indication: RHEUMATOID ARTHRITIS
     Route: 065
     Dates: start: 20020326
  4. ARTHROTEC [Concomitant]
     Indication: PAIN
     Route: 065
     Dates: start: 20040423
  5. SULFASALAZINE [Concomitant]
     Indication: RHEUMATOID ARTHRITIS
     Route: 065
     Dates: start: 20020326
  6. FOLIC ACID [Concomitant]
     Indication: RHEUMATOID ARTHRITIS
     Route: 065
     Dates: start: 20020326

REACTIONS (2)
  - PULMONARY EMBOLISM [None]
  - HYSTERECTOMY [None]
